FAERS Safety Report 7731791-X (Version None)
Quarter: 2011Q3

REPORT INFORMATION
  Report Type: 
  Country: None (occurrence: None)
  Receive Date: 20110906
  Receipt Date: 20110705
  Transmission Date: 20111222
  Serious: No
  Sender: FDA-Public Use
  Company Number: US-AMGEN-USASP2011029377

PATIENT
  Age: 37 Year
  Sex: Female
  Weight: 52.154 kg

DRUGS (1)
  1. PROLIA [Suspect]
     Indication: OSTEOPOROSIS
     Dosage: 60 MG, Q6MO
     Dates: start: 20110523

REACTIONS (2)
  - CYSTITIS [None]
  - PAIN IN EXTREMITY [None]
